FAERS Safety Report 6927867-7 (Version None)
Quarter: 2010Q3

REPORT INFORMATION
  Report Type: 
  Country: None (occurrence: None)
  Receive Date: 20100817
  Receipt Date: 20100806
  Transmission Date: 20110219
  Serious: Yes (Other)
  Sender: FDA-Public Use
  Company Number: US-PFIZER INC-2010082949

PATIENT
  Sex: Male

DRUGS (4)
  1. CHANTIX [Suspect]
     Indication: SMOKING CESSATION THERAPY
     Dosage: UNK
     Dates: start: 20081101, end: 20081201
  2. CHANTIX [Suspect]
     Dosage: UNK
     Dates: start: 20090201, end: 20090301
  3. LORTAB [Concomitant]
     Indication: PAIN
     Dosage: UNK
     Dates: start: 20081102, end: 20100501
  4. NAPROSYN [Concomitant]
     Indication: PAIN
     Dosage: UNK
     Dates: start: 20081102, end: 20100501

REACTIONS (3)
  - AGGRESSION [None]
  - DEPRESSION [None]
  - PARANOIA [None]
